FAERS Safety Report 15619581 (Version 1)
Quarter: 2018Q4

REPORT INFORMATION
  Report Type: Report from Study
  Country: IT (occurrence: IT)
  Receive Date: 20181115
  Receipt Date: 20181115
  Transmission Date: 20190205
  Serious: Yes (Other)
  Sender: FDA-Public Use
  Company Number: IT-ACCORD-092515

PATIENT
  Age: 52 Year
  Sex: Female

DRUGS (2)
  1. SALAZOPYRIN EN [Concomitant]
     Active Substance: SULFASALAZINE
     Route: 048
  2. METHOTREXATE. [Suspect]
     Active Substance: METHOTREXATE
     Indication: CROHN^S DISEASE
     Route: 030
     Dates: start: 20100726, end: 20180219

REACTIONS (1)
  - Hepatocellular injury [Unknown]

NARRATIVE: CASE EVENT DATE: 20180219
